FAERS Safety Report 12194699 (Version 2)
Quarter: 2016Q2

REPORT INFORMATION
  Report Type: Spontaneous
  Country: US (occurrence: US)
  Receive Date: 20160321
  Receipt Date: 20160404
  Transmission Date: 20160815
  Serious: Yes (Hospitalization)
  Sender: FDA-Public Use
  Company Number: US-ELI_LILLY_AND_COMPANY-US201603003744

PATIENT
  Age: 72 Year
  Sex: Female

DRUGS (9)
  1. VESICARE [Concomitant]
     Active Substance: SOLIFENACIN SUCCINATE
     Route: 065
  2. POTASSIUM [Concomitant]
     Active Substance: POTASSIUM
  3. ADCIRCA [Suspect]
     Active Substance: TADALAFIL
     Indication: PRODUCT USED FOR UNKNOWN INDICATION
     Dosage: UNK, UNKNOWN
     Route: 065
  4. MULTIVITAMIN                       /00097801/ [Concomitant]
     Active Substance: VITAMINS
     Route: 065
  5. LETAIRIS [Suspect]
     Active Substance: AMBRISENTAN
     Indication: PULMONARY ARTERIAL HYPERTENSION
     Dosage: 5 MG, QD
     Route: 065
     Dates: start: 20151224
  6. ULTRAM [Concomitant]
     Active Substance: TRAMADOL HYDROCHLORIDE
  7. PROTONIX                           /00661201/ [Concomitant]
     Active Substance: OMEPRAZOLE
  8. TRAZODONE [Concomitant]
     Active Substance: TRAZODONE HYDROCHLORIDE
     Route: 065
  9. LASIX [Concomitant]
     Active Substance: FUROSEMIDE

REACTIONS (6)
  - Fluid overload [Unknown]
  - Oedema [Unknown]
  - Hypoxia [Unknown]
  - Pulmonary arterial hypertension [Unknown]
  - Oedema peripheral [Unknown]
  - Fluid retention [Recovered/Resolved]

NARRATIVE: CASE EVENT DATE: 20151227
